FAERS Safety Report 6709952-8 (Version None)
Quarter: 2010Q2

REPORT INFORMATION
  Report Type: 
  Country: None (occurrence: None)
  Receive Date: 20100429
  Receipt Date: 20100420
  Transmission Date: 20101027
  Serious: Yes (Other)
  Sender: FDA-Public Use
  Company Number: 010224

PATIENT
  Sex: Male
  Weight: 12 kg

DRUGS (2)
  1. KEPPRA [Suspect]
     Dosage: 250 MG BID, 3 ML BID
     Dates: start: 20100301
  2. OSPOLOT [Concomitant]

REACTIONS (1)
  - BLOOD ALKALINE PHOSPHATASE INCREASED [None]
